FAERS Safety Report 7688279-4 (Version None)
Quarter: 2011Q3

REPORT INFORMATION
  Report Type: 
  Country: None (occurrence: None)
  Receive Date: 20110817
  Receipt Date: 20110609
  Transmission Date: 20111222
  Serious: No
  Sender: FDA-Public Use
  Company Number: US-KINGPHARMUSA00001-K201100703

PATIENT
  Sex: Male

DRUGS (1)
  1. CYTOMEL [Suspect]
     Indication: CHRONIC FATIGUE SYNDROME
     Dosage: 25 MCG, UNK
     Route: 048

REACTIONS (6)
  - DIZZINESS [None]
  - SKIN DISCOLOURATION [None]
  - FLUSHING [None]
  - ERYTHEMA [None]
  - PARAESTHESIA [None]
  - OEDEMA [None]
